FAERS Safety Report 14854471 (Version 2)
Quarter: 2018Q2

REPORT INFORMATION
  Report Type: Spontaneous
  Country: CH (occurrence: CH)
  Receive Date: 20180507
  Receipt Date: 20180514
  Transmission Date: 20180711
  Serious: Yes (Hospitalization)
  Sender: FDA-Public Use
  Company Number: CH-PFIZER INC-2018181529

PATIENT
  Age: 84 Year
  Sex: Male

DRUGS (9)
  1. XARELTO [Concomitant]
     Active Substance: RIVAROXABAN
     Indication: ATRIAL FIBRILLATION
     Dosage: 20MG 1X/DAY
     Route: 048
  2. TORASEMID SANDOZ ECO [Concomitant]
     Active Substance: TORSEMIDE
     Dosage: 10MG 1X/DAY
     Route: 048
     Dates: end: 20180306
  3. CONCOR [Suspect]
     Active Substance: BISOPROLOL FUMARATE
     Dosage: 2.5 MG, 3X/DAY (ACCORDING TO SCHEME 1-1-1-0)
     Route: 048
     Dates: end: 20180306
  4. DIGOXINE [Suspect]
     Active Substance: DIGOXIN
     Dosage: 0.125 MG 1X/DAY
     Route: 048
     Dates: end: 20180306
  5. METOLAZON [Concomitant]
     Active Substance: METOLAZONE
     Dosage: 5MG 1X/DAY
     Route: 048
     Dates: end: 20180306
  6. ALDACTONE [Suspect]
     Active Substance: SPIRONOLACTONE
     Dosage: 25MG 1X/DAY
     Route: 048
     Dates: end: 20180306
  7. CONCOR [Suspect]
     Active Substance: BISOPROLOL FUMARATE
     Dosage: 5 MG, 2X/DAY, (ACCORDING TO SCHEME 1-0-1-0)
     Route: 048
     Dates: end: 20180306
  8. TIROSINT [Concomitant]
     Active Substance: LEVOTHYROXINE SODIUM
     Indication: HYPOTHYROIDISM
     Dosage: 50UG 1X/DAY
     Route: 048
  9. ENALAPRIL-MEPHA [Suspect]
     Active Substance: ENALAPRIL
     Dosage: 2.5 MG, 2X/DAY
     Route: 048
     Dates: end: 20180306

REACTIONS (5)
  - Cardiogenic shock [Recovered/Resolved]
  - Asthenia [Recovered/Resolved]
  - Hyperkalaemia [Recovered/Resolved]
  - Malaise [Recovered/Resolved]
  - Bradycardia [Recovered/Resolved]

NARRATIVE: CASE EVENT DATE: 20180306
